FAERS Safety Report 18905585 (Version 1)
Quarter: 2021Q1

REPORT INFORMATION
  Report Type: Spontaneous
  Country: US (occurrence: US)
  Receive Date: 20210217
  Receipt Date: 20210217
  Transmission Date: 20210420
  Serious: No
  Sender: FDA-Public Use
  Company Number: US-009507513-2102USA006302

PATIENT
  Sex: Female
  Weight: 52.16 kg

DRUGS (1)
  1. CELESTONE SOLUSPAN [Suspect]
     Active Substance: BETAMETHASONE ACETATE\BETAMETHASONE SODIUM PHOSPHATE
     Indication: CARPAL TUNNEL SYNDROME
     Dosage: UNK

REACTIONS (2)
  - Product use in unapproved indication [Unknown]
  - Heart rate increased [Unknown]
